FAERS Safety Report 14801448 (Version 4)
Quarter: 2018Q2

REPORT INFORMATION
  Report Type: Spontaneous
  Country: US (occurrence: US)
  Receive Date: 20180424
  Receipt Date: 20180518
  Transmission Date: 20180711
  Serious: No
  Sender: FDA-Public Use
  Company Number: US-BEH-2018089950

PATIENT
  Sex: Male

DRUGS (2)
  1. HAEGARDA [Suspect]
     Active Substance: HUMAN C1-ESTERASE INHIBITOR
     Indication: HEREDITARY ANGIOEDEMA
     Dosage: 6300 IU, BIW
     Route: 058
     Dates: start: 20180227, end: 20180424
  2. FIRAZYR [Concomitant]
     Active Substance: ICATIBANT ACETATE
     Dosage: UNK, PRN (ON DEMAND)
     Route: 058

REACTIONS (6)
  - Injection site rash [Not Recovered/Not Resolved]
  - Injection site pain [Unknown]
  - Chills [Unknown]
  - Injection site pruritus [Unknown]
  - Malaise [Unknown]
  - Injection site swelling [Unknown]
